FAERS Safety Report 20999837 (Version 1)
Quarter: 2022Q2

REPORT INFORMATION
  Report Type: Spontaneous
  Country: PL (occurrence: PL)
  Receive Date: 20220623
  Receipt Date: 20220623
  Transmission Date: 20220721
  Serious: Yes (Hospitalization, Other)
  Sender: FDA-Public Use
  Company Number: PL-009507513-2205POL008186

PATIENT
  Age: 71 Year
  Sex: Female

DRUGS (4)
  1. CARBOPLATIN [Suspect]
     Active Substance: CARBOPLATIN
     Indication: Hepatic cancer metastatic
     Dosage: AT THE TARGET DOSE AUC (AREA UNDER CURVE) = 5 MG/ML
  2. PEMETREXED [Suspect]
     Active Substance: PEMETREXED
     Indication: Hepatic cancer metastatic
     Dosage: UNK, CYCLICAL
     Dates: end: 20210907
  3. PEMBROLIZUMAB [Suspect]
     Active Substance: PEMBROLIZUMAB
     Indication: Hepatic cancer metastatic
     Dosage: UNK UNK, CYCLICAL
     Dates: end: 20210907
  4. CISPLATIN [Suspect]
     Active Substance: CISPLATIN
     Indication: Hepatic cancer metastatic
     Dosage: UNK, CYCLICAL
     Dates: end: 20210223

REACTIONS (6)
  - Fatigue [Unknown]
  - Hypothyroidism [Unknown]
  - Hyperthyroidism [Unknown]
  - Therapeutic product effect incomplete [Unknown]
  - Acute kidney injury [Recovering/Resolving]
  - Malignant neoplasm progression [Unknown]

NARRATIVE: CASE EVENT DATE: 20210101
